FAERS Safety Report 5053685-3 (Version None)
Quarter: 2006Q3

REPORT INFORMATION
  Report Type: 
  Country: None (occurrence: None)
  Receive Date: 20060718
  Receipt Date: 20060224
  Transmission Date: 20061208
  Serious: Yes (Other)
  Sender: FDA-Public Use
  Company Number: JP-ROCHE-438557

PATIENT
  Age: 59 Year
  Sex: Female
  Weight: 50 kg

DRUGS (2)
  1. TAMIFLU [Suspect]
     Route: 048
     Dates: start: 20060217, end: 20060219
  2. CALONAL [Concomitant]
     Dosage: TAKEN AS NEEDED.
     Dates: start: 20060217, end: 20060218

REACTIONS (4)
  - HEAD DISCOMFORT [None]
  - HEADACHE [None]
  - NAUSEA [None]
  - VOMITING [None]
